FAERS Safety Report 4276390-X (Version None)
Quarter: 2004Q1

REPORT INFORMATION
  Report Type: 
  Country: None (occurrence: None)
  Receive Date: 20040121
  Receipt Date: 20040113
  Transmission Date: 20041129
  Serious: Yes (Congenital Anomaly)
  Sender: FDA-Public Use
  Company Number: MX-BRISTOL-MYERS SQUIBB COMPANY-12480208

PATIENT

DRUGS (2)
  1. VASODILAN [Suspect]
     Indication: HAEMORRHAGE
     Route: 064
  2. CUERPO AMARILLO FUERTE [Concomitant]
     Indication: HAEMORRHAGE
     Route: 064

REACTIONS (2)
  - LIMB MALFORMATION [None]
  - MATERNAL DRUGS AFFECTING FOETUS [None]
